FAERS Safety Report 26012288 (Version 1)
Quarter: 2025Q4

REPORT INFORMATION
  Report Type: Report from Study
  Country: CA (occurrence: CA)
  Receive Date: 20251107
  Receipt Date: 20251107
  Transmission Date: 20260117
  Serious: Yes (Other)
  Sender: VERITY PHARMACEUTICALS INC.
  Company Number: CA-VER-202500218

PATIENT
  Age: 85 Year
  Sex: Male

DRUGS (12)
  1. TRELSTAR [Suspect]
     Active Substance: TRIPTORELIN PAMOATE
     Indication: Prostate cancer
     Dosage: EIGHTH DOSE: (11.25 MILLIGRAM(S), IN 3 MONTH);?POWDER FOR PROLONGED-RELEASE SUSPENSION FOR INJECT
     Route: 030
     Dates: start: 20240628, end: 20240628
  2. TRELSTAR [Suspect]
     Active Substance: TRIPTORELIN PAMOATE
     Indication: Prostate cancer
     Dosage: ELEVENTH DOSE: (11.25 MILLIGRAM(S), IN 3 MONTH);?POWDER FOR PROLONGED-RELEASE SUSPENSION FOR INJECT
     Route: 030
     Dates: start: 20250402, end: 20250402
  3. TRELSTAR [Suspect]
     Active Substance: TRIPTORELIN PAMOATE
     Indication: Prostate cancer
     Dosage: FIFTH DOSE: (11.25 MILLIGRAM(S), IN 3 MONTH);?POWDER FOR PROLONGED-RELEASE SUSPENSION FOR INJECT
     Route: 030
     Dates: start: 20230928, end: 20230928
  4. TRELSTAR [Suspect]
     Active Substance: TRIPTORELIN PAMOATE
     Indication: Prostate cancer
     Dosage: FIRST DOSE: (11.25 MILLIGRAM(S), IN 3 MONTH); ?POWDER FOR PROLONGED-RELEASE SUSPENSION FOR INJECT
     Route: 030
     Dates: start: 20221006, end: 20221006
  5. TRELSTAR [Suspect]
     Active Substance: TRIPTORELIN PAMOATE
     Indication: Prostate cancer
     Dosage: FOURTH DOSE: (11.25 MILLIGRAM(S), IN 3 MONTH);?POWDER FOR PROLONGED-RELEASE SUSPENSION FOR INJECT
     Route: 030
     Dates: start: 20230628, end: 20230628
  6. TRELSTAR [Suspect]
     Active Substance: TRIPTORELIN PAMOATE
     Indication: Prostate cancer
     Dosage: NINTH DOSE: (11.25 MILLIGRAM(S), IN 3 MONTH);?POWDER FOR PROLONGED-RELEASE SUSPENSION FOR INJECT?STA
     Route: 030
     Dates: start: 20241001, end: 20241001
  7. TRELSTAR [Suspect]
     Active Substance: TRIPTORELIN PAMOATE
     Indication: Prostate cancer
     Dosage: SECOND DOSE: (11.25 MILLIGRAM(S), IN 3 MONTH);?POWDER FOR PROLONGED-RELEASE SUSPENSION FOR INJECT
     Route: 030
     Dates: start: 20221229, end: 20221229
  8. TRELSTAR [Suspect]
     Active Substance: TRIPTORELIN PAMOATE
     Indication: Prostate cancer
     Dosage: SEVENTH DOSE: (11.25 MILLIGRAM(S), IN 3 MONTH);?POWDER FOR PROLONGED-RELEASE SUSPENSION FOR INJECT
     Route: 030
     Dates: start: 20240328, end: 20240328
  9. TRELSTAR [Suspect]
     Active Substance: TRIPTORELIN PAMOATE
     Indication: Prostate cancer
     Dosage: SIXTH DOSE: (11.25 MILLIGRAM(S), IN 3 MONTH);?POWDER FOR PROLONGED-RELEASE SUSPENSION FOR INJECT
     Route: 030
     Dates: start: 20231229, end: 20231229
  10. TRELSTAR [Suspect]
     Active Substance: TRIPTORELIN PAMOATE
     Indication: Prostate cancer
     Dosage: TENTH DOSE: (11.25 MILLIGRAM(S), IN 3 MONTH);?POWDER FOR PROLONGED-RELEASE SUSPENSION FOR INJECT?STA
     Route: 030
     Dates: start: 20250102, end: 20250102
  11. TRELSTAR [Suspect]
     Active Substance: TRIPTORELIN PAMOATE
     Indication: Prostate cancer
     Dosage: THIRD DOSE: (11.25 MILLIGRAM(S), IN 3 MONTH);?POWDER FOR PROLONGED-RELEASE SUSPENSION FOR INJECT
     Route: 030
     Dates: start: 20230328, end: 20230328
  12. TRELSTAR [Suspect]
     Active Substance: TRIPTORELIN PAMOATE
     Indication: Prostate cancer
     Dosage: TWELFTH  DOSE: (11.25 MILLIGRAM(S), IN 3 MONTH);?POWDER FOR PROLONGED-RELEASE SUSPENSION FOR INJECT
     Route: 030
     Dates: start: 20251002, end: 20251002

REACTIONS (10)
  - Bronchitis [Recovered/Resolved]
  - Asthenia [Not Recovered/Not Resolved]
  - Hypotension [Recovering/Resolving]
  - Oxygen saturation abnormal [Unknown]
  - Nasopharyngitis [Unknown]
  - Cough [Unknown]
  - Feeling hot [Recovering/Resolving]
  - Fatigue [Not Recovered/Not Resolved]
  - Inappropriate schedule of product administration [Recovered/Resolved]
  - Neoplasm malignant [Not Recovered/Not Resolved]

NARRATIVE: CASE EVENT DATE: 20221229
